FAERS Safety Report 5420309-2 (Version None)
Quarter: 2007Q3

REPORT INFORMATION
  Report Type: 
  Country: None (occurrence: None)
  Receive Date: 20070815
  Receipt Date: 20070802
  Transmission Date: 20080115
  Serious: Yes (Life-Threatening, Hospitalization, Other)
  Sender: FDA-Public Use
  Company Number: 159612ISR

PATIENT
  Age: 45 Year
  Sex: Female

DRUGS (1)
  1. METRONIDAZOLE [Suspect]
     Dosage: ORAL
     Route: 048
     Dates: start: 20070718, end: 20070721

REACTIONS (1)
  - PUSTULAR PSORIASIS [None]
